FAERS Safety Report 11376284 (Version 1)
Quarter: 2015Q3

REPORT INFORMATION
  Report Type: Spontaneous
  Country: US (occurrence: US)
  Receive Date: 20150813
  Receipt Date: 20150813
  Transmission Date: 20151125
  Serious: No
  Sender: FDA-Public Use
  Company Number: US-PFIZER INC-2015265837

PATIENT
  Age: 59 Year
  Sex: Male
  Weight: 58 kg

DRUGS (2)
  1. LYRICA [Suspect]
     Active Substance: PREGABALIN
     Indication: POST HERPETIC NEURALGIA
     Dosage: 25 MG, 2X/DAY (ONE TABLET 2 TIMES A DAY)
     Dates: start: 2015, end: 2015
  2. BENADRYL [Concomitant]
     Active Substance: DIPHENHYDRAMINE HYDROCHLORIDE
     Indication: PRURITUS
     Dosage: ONE DOSE EVERY 4-6 HOURS

REACTIONS (7)
  - Feeling abnormal [Not Recovered/Not Resolved]
  - Viral infection [Unknown]
  - Chest pain [Not Recovered/Not Resolved]
  - Tremor [Unknown]
  - Hypersensitivity [Unknown]
  - Insomnia [Unknown]
  - Chest discomfort [Not Recovered/Not Resolved]

NARRATIVE: CASE EVENT DATE: 2015
